FAERS Safety Report 8768782 (Version 2)
Quarter: 2012Q4

REPORT INFORMATION
  Report Type: 
  Country: NZ (occurrence: NZ)
  Receive Date: 20120904
  Receipt Date: 20120908
  Transmission Date: 20130627
  Serious: Yes (Death, Other)
  Sender: FDA-Public Use
  Company Number: NZ-B.I. PHARMACEUTICALS,INC./RIDGEFIELD-2012-AU-01558AU

PATIENT
  Sex: Male

DRUGS (2)
  1. PRADAXA [Suspect]
  2. ASPIRIN [Concomitant]

REACTIONS (2)
  - Upper gastrointestinal haemorrhage [Fatal]
  - Renal failure acute [Unknown]
